FAERS Safety Report 9536930 (Version 3)
Quarter: 2014Q2

REPORT INFORMATION
  Report Type: Report from Study
  Country: US (occurrence: US)
  Receive Date: 20130919
  Receipt Date: 20140619
  Transmission Date: 20141212
  Serious: Yes (Hospitalization)
  Sender: FDA-Public Use
  Company Number: US-NOVOPROD-387481

PATIENT
  Age: 16 Year
  Sex: Male

DRUGS (2)
  1. NORDITROPIN FLEXPRO 10 MG/ML [Suspect]
     Indication: DWARFISM
     Dosage: UNKNOWN
     Route: 058
     Dates: start: 201309
  2. NORDITROPIN FLEXPRO 10 MG/ML [Suspect]
     Indication: GROWTH HORMONE DEFICIENCY

REACTIONS (2)
  - Abdominal pain [Recovering/Resolving]
  - Nausea [Recovering/Resolving]
